FAERS Safety Report 17108819 (Version 1)
Quarter: 2019Q4

REPORT INFORMATION
  Report Type: Spontaneous
  Country: CA (occurrence: CA)
  Receive Date: 20191203
  Receipt Date: 20191203
  Transmission Date: 20200122
  Serious: Yes (Hospitalization, Other)
  Sender: FDA-Public Use
  Company Number: CA-B.BRAUN MEDICAL INC.-2077437

PATIENT
  Age: 74 Year
  Sex: Male

DRUGS (1)
  1. 0.9% SODIUM CHLORIDE IRRIGATION USP 0264-7388-50 0264-7388-60 (NDA 016 [Suspect]
     Active Substance: SODIUM CHLORIDE
     Indication: PRODUCT USED FOR UNKNOWN INDICATION
     Route: 033

REACTIONS (4)
  - Device issue [None]
  - Gastrointestinal disorder [None]
  - Intestinal perforation [None]
  - Peritonitis [None]
